FAERS Safety Report 5472661-X (Version None)
Quarter: 2007Q4

REPORT INFORMATION
  Report Type: 
  Country: None (occurrence: None)
  Receive Date: 20071001
  Receipt Date: 20060908
  Transmission Date: 20080405
  Serious: No
  Sender: FDA-Public Use
  Company Number: US-ASTRAZENECA-2006UW16190

PATIENT
  Age: 79 Year
  Sex: Female
  Weight: 77.7 kg

DRUGS (6)
  1. ARIMIDEX [Suspect]
     Indication: BREAST CANCER FEMALE
     Route: 048
     Dates: start: 20051108
  2. ATENOLOL [Concomitant]
  3. NELODIPINE [Concomitant]
  4. SYNTHROID [Concomitant]
  5. LORAZEPAM [Concomitant]
  6. PLENDIL [Concomitant]
     Route: 048

REACTIONS (1)
  - ERYTHEMA [None]
